FAERS Safety Report 5589911-1 (Version None)
Quarter: 2008Q1

REPORT INFORMATION
  Report Type: 
  Country: None (occurrence: None)
  Receive Date: 20080114
  Receipt Date: 20080104
  Transmission Date: 20080703
  Serious: Yes (Death, Hospitalization)
  Sender: FDA-Public Use
  Company Number: US-JNJFOC-20080102267

PATIENT
  Age: 1 Day
  Sex: Male

DRUGS (4)
  1. DIPHENHYDRAMINE HCL [Suspect]
     Indication: POISONING DELIBERATE
  2. ALPRAZOLAM [Suspect]
     Indication: POISONING DELIBERATE
  3. ZOLPIDEM [Suspect]
     Indication: POISONING DELIBERATE
  4. FLUOXETINE [Suspect]
     Indication: POISONING DELIBERATE

REACTIONS (2)
  - DRUG TOXICITY [None]
  - INTENTIONAL DRUG MISUSE [None]
